FAERS Safety Report 4297290-5 (Version None)
Quarter: 2004Q1

REPORT INFORMATION
  Report Type: 
  Country: None (occurrence: None)
  Receive Date: 20040213
  Receipt Date: 20040203
  Transmission Date: 20041129
  Serious: Yes (Hospitalization)
  Sender: FDA-Public Use
  Company Number: 2004197435FR

PATIENT
  Age: 58 Year
  Sex: Male
  Weight: 76 kg

DRUGS (6)
  1. SOLU-MEDROL [Suspect]
     Indication: ACUTE SINUSITIS
     Dosage: 76 MG, QD, IV
     Route: 042
     Dates: start: 20040102, end: 20040107
  2. AUGMENTIN '125' [Suspect]
     Indication: ACUTE SINUSITIS
     Dosage: 1 G, TID, ORAL
     Route: 048
     Dates: start: 20040102, end: 20040107
  3. GENTAMICIN [Suspect]
     Indication: PNEUMONIA BACTERIAL
     Dosage: 228 MG, QD, IV
     Route: 042
     Dates: start: 20040109, end: 20040112
  4. NADROPARIN CALCIUM (HEPARIN-FRACTION, CALCIUM SALT) [Suspect]
     Indication: PULMONARY EMBOLISM
     Dosage: 0.7 ML, QD, SUBCUTANEOUS
     Route: 058
     Dates: start: 20040108, end: 20040110
  5. PYOSTACINE (PRISTINAMYCIN) [Concomitant]
     Indication: ACUTE SINUSITIS
     Dosage: 500 MG, TID, ORAL
     Route: 048
     Dates: start: 20040107, end: 20040109
  6. VANCOMYCIN [Suspect]
     Indication: PNEUMONIA BACTERIAL
     Dosage: 1 G, BID, IV
     Route: 042
     Dates: start: 20040109, end: 20040112

REACTIONS (4)
  - PNEUMONIA BACTERIAL [None]
  - PULMONARY EMBOLISM [None]
  - RASH ERYTHEMATOUS [None]
  - RASH MACULO-PAPULAR [None]
